FAERS Safety Report 23249448 (Version 1)
Quarter: 2023Q4

REPORT INFORMATION
  Report Type: Spontaneous
  Country: JP (occurrence: JP)
  Receive Date: 20231201
  Receipt Date: 20231201
  Transmission Date: 20240109
  Serious: Yes (Other)
  Sender: FDA-Public Use
  Company Number: JP-GILEAD-2023-0652678

PATIENT
  Age: 8 Decade
  Sex: Female

DRUGS (2)
  1. EPCLUSA [Suspect]
     Active Substance: SOFOSBUVIR\VELPATASVIR
     Indication: Hepatitis C
     Dosage: UNK
     Route: 065
  2. EPCLUSA [Suspect]
     Active Substance: SOFOSBUVIR\VELPATASVIR
     Indication: Hepatic cirrhosis
     Dosage: UNK
     Route: 065

REACTIONS (5)
  - Hepatocellular carcinoma [Unknown]
  - Varices oesophageal [Unknown]
  - Hepatitis C [Recovered/Resolved]
  - Drug ineffective [Unknown]
  - Product use in unapproved indication [Recovered/Resolved]
